FAERS Safety Report 11589904 (Version 2)
Quarter: 2015Q4

REPORT INFORMATION
  Report Type: Report from Study
  Country: CO (occurrence: CO)
  Receive Date: 20151002
  Receipt Date: 20151009
  Transmission Date: 20160304
  Serious: Yes (Other)
  Sender: FDA-Public Use
  Company Number: CO-REGENERON PHARMACEUTICALS, INC.-2015-12733

PATIENT

DRUGS (11)
  1. OMEPRAZOLE. [Concomitant]
     Active Substance: OMEPRAZOLE
  2. EYLEA [Suspect]
     Active Substance: AFLIBERCEPT
     Indication: NEOVASCULAR AGE-RELATED MACULAR DEGENERATION
     Dosage: UNK
  3. EYLEA [Suspect]
     Active Substance: AFLIBERCEPT
     Dosage: UNK, MONTHLY
     Route: 031
     Dates: start: 20141124
  4. CARVEDILOL. [Concomitant]
     Active Substance: CARVEDILOL
  5. NPH INSULIN [Concomitant]
     Active Substance: INSULIN BEEF
  6. LOSARTAN. [Concomitant]
     Active Substance: LOSARTAN
  7. FUROSEMIDE. [Concomitant]
     Active Substance: FUROSEMIDE
  8. ISORDIL [Concomitant]
     Active Substance: ISOSORBIDE DINITRATE
  9. THEOPHYLLINE [Concomitant]
     Active Substance: THEOPHYLLINE ANHYDROUS
  10. ATORVASTATIN [Concomitant]
     Active Substance: ATORVASTATIN
  11. LINAGLIPTIN [Concomitant]
     Active Substance: LINAGLIPTIN

REACTIONS (5)
  - Visual acuity reduced [Not Recovered/Not Resolved]
  - Blindness [Not Recovered/Not Resolved]
  - Drug ineffective [Not Recovered/Not Resolved]
  - Cataract operation [Recovered/Resolved]
  - Visual impairment [Unknown]

NARRATIVE: CASE EVENT DATE: 201309
